FAERS Safety Report 10146842 (Version 3)
Quarter: 2014Q2

REPORT INFORMATION
  Report Type: Report from Study
  Country: JP (occurrence: JP)
  Receive Date: 20140501
  Receipt Date: 20140523
  Transmission Date: 20141212
  Serious: Yes (Hospitalization)
  Sender: FDA-Public Use
  Company Number: JP-009507513-1308JPN012771

PATIENT
  Age: 59 Year
  Sex: Male
  Weight: 53 kg

DRUGS (13)
  1. PEGINTRON POWDER FOR INJECTION 150MICROG [Suspect]
     Indication: CHRONIC HEPATITIS C
     Dosage: 1.5 UG/KG/WEEK
     Route: 058
     Dates: start: 20120411, end: 20120427
  2. REBETOL CAPSULES 200MG [Suspect]
     Indication: CHRONIC HEPATITIS C
     Dosage: 800 MG, QD
     Route: 048
     Dates: start: 20120411, end: 20120427
  3. TELAVIC [Suspect]
     Indication: CHRONIC HEPATITIS C
     Dosage: 2250 MG, QD
     Route: 048
     Dates: start: 20120411, end: 20120427
  4. HUMIRA [Suspect]
     Indication: CROHN^S DISEASE
     Dosage: 40 MG EVERY 2 WEEKS
     Route: 058
  5. HUMIRA [Suspect]
     Dosage: 80 MG, QD
     Route: 058
     Dates: start: 20120711, end: 20120711
  6. HUMIRA [Suspect]
     Dosage: 80 MG, QD
     Route: 058
     Dates: start: 20120808, end: 20120808
  7. HUMIRA [Suspect]
     Dosage: 80 MG, QD
     Route: 058
     Dates: start: 20120906, end: 20120906
  8. PENTASA [Concomitant]
     Indication: CROHN^S DISEASE
     Dosage: 1000 MG, QD; FORMULATION:POR
     Route: 048
  9. PENTASA [Concomitant]
     Dosage: 1000 MG, BID; FORMULATION:POR
     Route: 048
  10. ELENTAL [Concomitant]
     Indication: CROHN^S DISEASE
     Dosage: FORMULATION:POR
     Route: 048
     Dates: start: 20091227
  11. MYSLEE [Concomitant]
     Indication: INSOMNIA
     Dosage: 5 MG, QD
     Route: 048
     Dates: start: 20110427
  12. URSO [Concomitant]
     Indication: CHRONIC HEPATITIS C
     Dosage: 200 MG, TID
     Route: 048
     Dates: start: 20110601
  13. PARIET [Concomitant]
     Indication: PROPHYLAXIS
     Dosage: 10 MG, QD FORMUALTION:POR
     Route: 048
     Dates: start: 20120419, end: 20120425

REACTIONS (2)
  - Crohn^s disease [Recovering/Resolving]
  - Gastric ulcer [Recovering/Resolving]
